FAERS Safety Report 8276508-8 (Version None)
Quarter: 2012Q2

REPORT INFORMATION
  Report Type: 
  Country: None (occurrence: None)
  Receive Date: 20120412
  Receipt Date: 20120104
  Transmission Date: 20120825
  Serious: No
  Sender: FDA-Public Use
  Company Number: US-GLAXOSMITHKLINE-A0957712A

PATIENT
  Age: 63 Year
  Sex: Male
  Weight: 105.5 kg

DRUGS (3)
  1. JALYN [Suspect]
     Indication: BENIGN PROSTATIC HYPERPLASIA
     Dosage: 1CAP SINGLE DOSE
     Route: 048
     Dates: start: 20110101
  2. ELOCON [Concomitant]
  3. ERYTHROMYCIN GEL [Concomitant]

REACTIONS (2)
  - PAIN IN JAW [None]
  - MIGRAINE [None]
